FAERS Safety Report 8626043-X (Version None)
Quarter: 2012Q3

REPORT INFORMATION
  Report Type: 
  Country: None (occurrence: None)
  Receive Date: 20120827
  Receipt Date: 20120814
  Transmission Date: 20120928
  Serious: Yes (Congenital Anomaly)
  Sender: FDA-Public Use
  Company Number: DE-FRI-1000036902

PATIENT
  Sex: Male
  Weight: 2.8 kg

DRUGS (4)
  1. CITALOPRAM HYDROBROMIDE [Suspect]
     Dosage: 10 MG
     Route: 064
     Dates: end: 20100808
  2. FOLIO [Concomitant]
     Dosage: 0.4 MG
     Route: 064
     Dates: start: 20100511
  3. INFLUENZA VACCINE [Concomitant]
     Route: 064
     Dates: start: 20101115, end: 20101115
  4. CITALOPRAM HYDROBROMIDE [Suspect]
     Dosage: 20 MG
     Route: 064
     Dates: start: 20100511

REACTIONS (10)
  - RECTOURETHRAL FISTULA [None]
  - FOETAL EXPOSURE DURING PREGNANCY [None]
  - HYDROCELE [None]
  - OESOPHAGEAL ATRESIA [None]
  - TRACHEO-OESOPHAGEAL FISTULA [None]
  - ANAL ATRESIA [None]
  - VESICOURETERIC REFLUX [None]
  - SPINE MALFORMATION [None]
  - ATRIAL SEPTAL DEFECT [None]
  - REFLUX NEPHROPATHY [None]
